FAERS Safety Report 11129890 (Version 3)
Quarter: 2015Q2

REPORT INFORMATION
  Report Type: Spontaneous
  Country: JP (occurrence: JP)
  Receive Date: 20150521
  Receipt Date: 20150617
  Transmission Date: 20150821
  Serious: Yes (Other)
  Sender: FDA-Public Use
  Company Number: JP-ASTELLAS-2015JP010515

PATIENT
  Age: 40 Year
  Sex: Female

DRUGS (4)
  1. PROTOPIC [Suspect]
     Active Substance: TACROLIMUS
     Indication: DERMATITIS ATOPIC
     Dosage: PROPER DOSE, UNKNOWN FREQ.
     Route: 061
     Dates: start: 20150509
  2. STROMECTOL [Suspect]
     Active Substance: IVERMECTIN
     Indication: ACARODERMATITIS
     Route: 048
     Dates: start: 20150509, end: 20150509
  3. EURAX [Concomitant]
     Active Substance: CROTAMITON
     Indication: ACARODERMATITIS
     Dosage: PROPER DOSE, UNKNOWN FREQ.
     Route: 065
     Dates: start: 20150509
  4. FEXOFENADINE [Concomitant]
     Active Substance: FEXOFENADINE\FEXOFENADINE HYDROCHLORIDE
     Indication: DERMATITIS ATOPIC
     Route: 048
     Dates: start: 20150509

REACTIONS (1)
  - Drug eruption [Recovered/Resolved]

NARRATIVE: CASE EVENT DATE: 20150512
